FAERS Safety Report 21393543 (Version 1)
Quarter: 2022Q3

REPORT INFORMATION
  Report Type: Spontaneous
  Country: US (occurrence: None)
  Receive Date: 20220928
  Receipt Date: 20220928
  Transmission Date: 20221026
  Serious: Yes (Hospitalization)
  Sender: FDA-Public Use
  Company Number: None

PATIENT
  Age: 36 Year
  Sex: Male

DRUGS (1)
  1. ERLOTINIB [Suspect]
     Active Substance: ERLOTINIB
     Dosage: 100MG DAILY ORAL?
     Route: 048
     Dates: start: 202207

REACTIONS (2)
  - Device occlusion [None]
  - Infection [None]

NARRATIVE: CASE EVENT DATE: 20220924
